FAERS Safety Report 5289810-9 (Version None)
Quarter: 2007Q2

REPORT INFORMATION
  Report Type: 
  Country: None (occurrence: None)
  Receive Date: 20070406
  Receipt Date: 20070403
  Transmission Date: 20071010
  Serious: Yes (Death)
  Sender: FDA-Public Use
  Company Number: TH-BOEHRINGER INGELHEIM PHARMACEUTICALS, INC.-2007-DE-01948GD

PATIENT

DRUGS (1)
  1. TRIOMUNE [Suspect]
     Indication: HIV INFECTION
     Dosage: NEVIRAPINE 400 MG / STAVUDINE 60 OR 80 MG / LAMIVUDINE 300 MG
     Route: 048

REACTIONS (1)
  - ESCHERICHIA SEPSIS [None]
